FAERS Safety Report 9498877 (Version 2)
Quarter: 2013Q3

REPORT INFORMATION
  Report Type: Report from Study
  Country: DE (occurrence: DE)
  Receive Date: 20130904
  Receipt Date: 20130904
  Transmission Date: 20140515
  Serious: Yes (Hospitalization)
  Sender: FDA-Public Use
  Company Number: DE-CELGENEUS-062-C4047-12010353

PATIENT
  Age: 66 Year
  Sex: Male
  Weight: 76 kg

DRUGS (3)
  1. CC-4047 [Suspect]
     Indication: MYELOFIBROSIS
     Dosage: .5 MILLIGRAM
     Route: 048
     Dates: start: 20110603, end: 20120103
  2. TILIDIN [Concomitant]
     Indication: PRODUCT USED FOR UNKNOWN INDICATION
     Route: 048
     Dates: start: 20111229
  3. CEFTRIAXON [Concomitant]
     Indication: PRODUCT USED FOR UNKNOWN INDICATION
     Dosage: 2 GRAM
     Route: 041
     Dates: start: 20111230

REACTIONS (1)
  - Small cell lung cancer extensive stage [Not Recovered/Not Resolved]
